FAERS Safety Report 5931120-8 (Version None)
Quarter: 2008Q4

REPORT INFORMATION
  Report Type: 
  Country: None (occurrence: None)
  Receive Date: 20081027
  Receipt Date: 20081016
  Transmission Date: 20090506
  Serious: Yes (Other)
  Sender: FDA-Public Use
  Company Number: PHHY2008GB23454

PATIENT
  Sex: Male

DRUGS (8)
  1. TEGRETOL [Suspect]
     Indication: EPILEPSY
     Dosage: 200 MG, UNK
     Route: 048
  2. TEGRETOL [Suspect]
     Dosage: 150 MG, QD
     Route: 048
  3. SPIRIVA [Concomitant]
     Indication: CHRONIC OBSTRUCTIVE PULMONARY DISEASE
     Dosage: 18 MG
  4. CALCICHEW [Concomitant]
     Dosage: UNK
  5. ALENDRONATE SODIUM [Concomitant]
     Dosage: 70 MG, WEEKLY
     Route: 048
  6. FUROSEMIDE [Concomitant]
     Dosage: 40 MG, NIGHT
     Route: 048
  7. CLOPIDOGREL [Concomitant]
     Dosage: 75 MG, NIGHT
     Route: 048
  8. ASPIRIN [Concomitant]
     Dosage: 75 MG, NIGHT
     Route: 048

REACTIONS (1)
  - NEUROLOGICAL SYMPTOM [None]
